FAERS Safety Report 16910304 (Version 1)
Quarter: 2019Q4

REPORT INFORMATION
  Report Type: Spontaneous
  Country: US (occurrence: US)
  Receive Date: 20190820
  Receipt Date: 20190820
  Transmission Date: 20200122
  Serious: Yes (Hospitalization)
  Sender: FDA-Public Use
  Company Number: None

PATIENT
  Age: 47 Year
  Sex: Female

DRUGS (4)
  1. DALFAMPRIDINE 10 MG [Suspect]
     Active Substance: DALFAMPRIDINE
     Indication: MULTIPLE SCLEROSIS
     Route: 048
     Dates: start: 20180712
  2. GABAPENTIN - 12/OCT/2018 [Concomitant]
  3. OXYBUTININ - 02/JUL/2019 [Concomitant]
  4. OCREVUS - 22/FEB/2018 [Concomitant]

REACTIONS (3)
  - Diarrhoea [None]
  - Abdominal pain [None]
  - Fall [None]
